FAERS Safety Report 19371250 (Version 1)
Quarter: 2021Q2

REPORT INFORMATION
  Report Type: Spontaneous
  Country: US (occurrence: US)
  Receive Date: 20210603
  Receipt Date: 20210603
  Transmission Date: 20210717
  Serious: No
  Sender: FDA-Public Use
  Company Number: US-SA-2021SA181756

PATIENT
  Sex: Male

DRUGS (10)
  1. ROSUVASTATIN. [Concomitant]
     Active Substance: ROSUVASTATIN
     Dosage: UNK
  2. ZYRTEC [Concomitant]
     Active Substance: CETIRIZINE HYDROCHLORIDE
     Dosage: UNK
  3. SYNTHROID [Concomitant]
     Active Substance: LEVOTHYROXINE SODIUM
  4. CERAVE ITCH RELIEF MOISTURIZING [Concomitant]
     Active Substance: PRAMOXINE HYDROCHLORIDE
     Dosage: UNK
  5. DUPIXENT [Suspect]
     Active Substance: DUPILUMAB
     Indication: DERMATITIS ATOPIC
     Dosage: UNK
     Route: 003
  6. TERAZOSIN [Concomitant]
     Active Substance: TERAZOSIN HYDROCHLORIDE
     Dosage: UNK
  7. LOSARTAN [LOSARTAN POTASSIUM] [Concomitant]
     Active Substance: LOSARTAN POTASSIUM
     Dosage: UNK
  8. WARFARIN [Concomitant]
     Active Substance: WARFARIN
     Dosage: UNK
  9. ASPIRIN. [Concomitant]
     Active Substance: ASPIRIN
     Dosage: UNK
  10. NEOMYCIN / POLY B / DEXAMETHASONE [Concomitant]
     Active Substance: DEXAMETHASONE\NEOMYCIN SULFATE\POLYMYXIN B SULFATE
     Dosage: UNK

REACTIONS (3)
  - Dry skin [Not Recovered/Not Resolved]
  - Pruritus [Not Recovered/Not Resolved]
  - Product use issue [Unknown]
